FAERS Safety Report 8607948-2 (Version None)
Quarter: 2012Q3

REPORT INFORMATION
  Report Type: 
  Country: None (occurrence: None)
  Receive Date: 20120821
  Receipt Date: 20120810
  Transmission Date: 20120928
  Serious: Yes (Hospitalization)
  Sender: FDA-Public Use
  Company Number: FR-MILLENNIUM PHARMACEUTICALS, INC.-2012-05337

PATIENT

DRUGS (7)
  1. VELCADE [Suspect]
     Indication: MANTLE CELL LYMPHOMA
     Dosage: 2.6 MG, UNK
     Route: 058
     Dates: start: 20120417, end: 20120716
  2. MABTHERA [Suspect]
     Indication: MANTLE CELL LYMPHOMA
     Dosage: 750 MG, UNK
     Route: 042
     Dates: start: 20120417, end: 20120709
  3. PLAVIX [Concomitant]
     Dosage: 75 MG, UNK
  4. BENDAMUSTINE HYDROCHLORIDE [Suspect]
     Indication: MANTLE CELL LYMPHOMA
     Dosage: 180 MG, UNK
     Route: 042
     Dates: start: 20120417, end: 20120710
  5. GLICLAZIDE [Concomitant]
     Dosage: 30 MG, UNK
  6. ALPRESIN [Concomitant]
  7. LYRICA [Concomitant]
     Dosage: 25 MG, UNK

REACTIONS (3)
  - MALOCCLUSION [None]
  - ILEUS [None]
  - INTESTINAL OBSTRUCTION [None]
